FAERS Safety Report 12235498 (Version 2)
Quarter: 2016Q2

REPORT INFORMATION
  Report Type: Report from Study
  Country: US (occurrence: US)
  Receive Date: 20160404
  Receipt Date: 20160406
  Transmission Date: 20160815
  Serious: Yes (Hospitalization)
  Sender: FDA-Public Use
  Company Number: PHHO2016US004816

PATIENT
  Age: 61 Year
  Sex: Male
  Weight: 71.47 kg

DRUGS (1)
  1. SOM230 [Suspect]
     Active Substance: PASIREOTIDE
     Indication: HEPATOCELLULAR CARCINOMA
     Dosage: 60 MG, EVERY 28 DAYS
     Route: 030
     Dates: start: 20150309, end: 20150812

REACTIONS (1)
  - Hepatobiliary disease [Recovered/Resolved]

NARRATIVE: CASE EVENT DATE: 20160228
